FAERS Safety Report 8491314-7 (Version None)
Quarter: 2012Q3

REPORT INFORMATION
  Report Type: 
  Country: None (occurrence: None)
  Receive Date: 20120706
  Receipt Date: 20120628
  Transmission Date: 20120928
  Serious: Yes (Hospitalization)
  Sender: FDA-Public Use
  Company Number: PHHY2012NO018942

PATIENT
  Sex: Female

DRUGS (7)
  1. ANTICOAGULANTS [Concomitant]
  2. ASPIRIN [Concomitant]
     Indication: DEEP VEIN THROMBOSIS
     Dosage: 1 DF, UNK
     Route: 048
  3. TRAMADOL HCL [Concomitant]
     Indication: PAIN
     Dosage: 1 DF, UNK
     Route: 048
  4. REMERON [Concomitant]
     Indication: DEPRESSION
     Dosage: 1 DF, UNK
     Route: 048
  5. RITALIN [Suspect]
     Indication: ATTENTION DEFICIT/HYPERACTIVITY DISORDER
     Dosage: 1 DF, UNK
     Route: 048
     Dates: start: 20101215, end: 20111229
  6. NEURONTIN [Concomitant]
     Indication: PAIN
     Dosage: 1 DF, UNK
     Route: 048
  7. AMITRIPTYLINE HCL [Concomitant]
     Indication: PAIN
     Dosage: 1 DF, UNK
     Route: 048

REACTIONS (4)
  - TRANSIENT ISCHAEMIC ATTACK [None]
  - APHASIA [None]
  - MOTOR DYSFUNCTION [None]
  - CEREBROVASCULAR DISORDER [None]
